FAERS Safety Report 12268135 (Version 1)
Quarter: 2016Q2

REPORT INFORMATION
  Report Type: Spontaneous
  Country: CH (occurrence: CH)
  Receive Date: 20160414
  Receipt Date: 20160414
  Transmission Date: 20160815
  Serious: Yes (Other)
  Sender: FDA-Public Use
  Company Number: CH-BAYER-2016-067012

PATIENT
  Age: 33 Year
  Sex: Female

DRUGS (1)
  1. QLAIRA [Suspect]
     Active Substance: DIENOGEST\ESTRADIOL VALERATE
     Dosage: UNK
     Dates: start: 201310

REACTIONS (7)
  - Headache [None]
  - Paraesthesia [Recovered/Resolved]
  - Migraine without aura [Not Recovered/Not Resolved]
  - Migraine with aura [None]
  - Speech disorder [Recovered/Resolved]
  - Visual impairment [None]
  - Intracranial pressure increased [None]

NARRATIVE: CASE EVENT DATE: 20151116
